FAERS Safety Report 4892067-1 (Version None)
Quarter: 2006Q1

REPORT INFORMATION
  Report Type: 
  Country: None (occurrence: None)
  Receive Date: 20060123
  Receipt Date: 20050707
  Transmission Date: 20060701
  Serious: Yes (Other)
  Sender: FDA-Public Use
  Company Number: KR200601002503

PATIENT
  Age: 69 Year
  Sex: Female
  Weight: 59 kg

DRUGS (10)
  1. GEMCITABINE HYDROCHLORIDE (GEMCITABINE HYDROCHLORIDE) [Suspect]
     Indication: NON-SMALL CELL LUNG CANCER
     Dosage: SEE IMAGE
     Route: 042
     Dates: start: 20050103, end: 20050421
  2. GEMCITABINE HYDROCHLORIDE (GEMCITABINE HYDROCHLORIDE) [Suspect]
     Indication: NON-SMALL CELL LUNG CANCER
     Dosage: SEE IMAGE
     Route: 042
     Dates: start: 20050103, end: 20050421
  3. CARBOPLATIN [Suspect]
     Indication: NON-SMALL CELL LUNG CANCER
     Dosage: SEE IMAGE
     Dates: start: 20050103, end: 20050421
  4. CARBOPLATIN [Suspect]
     Indication: NON-SMALL CELL LUNG CANCER
     Dosage: SEE IMAGE
     Dates: start: 20050103, end: 20050421
  5. RAMOSETRON (RAMOSETRON) [Concomitant]
  6. TRANEXAMIC ACID (TRANEXAMIC ACID) [Concomitant]
  7. CODEINE (CODEINE) [Concomitant]
  8. DOLASETRON (DOLASETRON) [Concomitant]
  9. AMLODIPINE [Concomitant]
  10. GRANISETRON (GRANISETRON) [Concomitant]

REACTIONS (3)
  - GRANULOCYTOPENIA [None]
  - NAUSEA [None]
  - THROMBOCYTOPENIA [None]
